FAERS Safety Report 9057751 (Version 1)
Quarter: 2013Q1

REPORT INFORMATION
  Report Type: Spontaneous
  Country: US (occurrence: US)
  Receive Date: 20130204
  Receipt Date: 20130204
  Transmission Date: 20140127
  Serious: No
  Sender: FDA-Public Use
  Company Number: US-PFIZER INC-2013044306

PATIENT
  Sex: Female

DRUGS (3)
  1. PRISTIQ [Suspect]
     Dosage: 100 MG, UNK
     Route: 048
  2. PRISTIQ [Suspect]
     Dosage: 50 MG, UNK
     Dates: start: 2012
  3. PRISTIQ [Suspect]
     Dosage: UNK

REACTIONS (4)
  - Vision blurred [Unknown]
  - Panic attack [Unknown]
  - Depression [Unknown]
  - Anxiety [Unknown]
